FAERS Safety Report 4575868-9 (Version None)
Quarter: 2005Q1

REPORT INFORMATION
  Report Type: 
  Country: None (occurrence: None)
  Receive Date: 20050207
  Receipt Date: 20050131
  Transmission Date: 20050727
  Serious: Yes (Other)
  Sender: FDA-Public Use
  Company Number: 004026

PATIENT
  Sex: Female

DRUGS (6)
  1. MEDROXYPROGESTERONE ACETATE [Suspect]
  2. CENESTIN [Suspect]
  3. ESTRADIOL [Suspect]
  4. ESTRADIOL [Suspect]
  5. ESTROPIPATE [Suspect]
  6. ESTROGENS ESTERIFIED (ESTROGENS ESTERIFIED) [Suspect]

REACTIONS (1)
  - BREAST CANCER FEMALE [None]
